FAERS Safety Report 5154394-2 (Version None)
Quarter: 2006Q4

REPORT INFORMATION
  Report Type: 
  Country: None (occurrence: None)
  Receive Date: 20061114
  Receipt Date: 20061031
  Transmission Date: 20070319
  Serious: Yes (Death)
  Sender: FDA-Public Use
  Company Number: 2006134386

PATIENT
  Age: 67 Year
  Sex: Male
  Weight: 74 kg

DRUGS (2)
  1. SUTENT [Suspect]
     Indication: NEOPLASM MALIGNANT
     Dosage: 25 MG (25 MG, 2 WEEKS ON - 1 WEEK OFF), ORAL
     Route: 048
     Dates: start: 20061020, end: 20061026
  2. CAMPTOSAR [Suspect]
     Indication: NEOPLASM MALIGNANT
     Dosage: 500 MG (250 MG/M2,EVERY 3 WEEKS), INTRAVENOUS
     Route: 042
     Dates: start: 20061020, end: 20061020

REACTIONS (8)
  - APHASIA [None]
  - COMA [None]
  - CONFUSIONAL STATE [None]
  - CONVULSION [None]
  - DYSPNOEA [None]
  - HYPOTENSION [None]
  - NERVOUS SYSTEM DISORDER [None]
  - QUADRIPARESIS [None]
